FAERS Safety Report 10713792 (Version 3)
Quarter: 2016Q1

REPORT INFORMATION
  Report Type: Spontaneous
  Country: US (occurrence: US)
  Receive Date: 20150115
  Receipt Date: 20160301
  Transmission Date: 20160525
  Serious: No
  Sender: FDA-Public Use
  Company Number: US-PFIZER INC-2015013045

PATIENT
  Age: 86 Year
  Sex: Female
  Weight: 59 kg

DRUGS (1)
  1. ADVIL COLD AND SINUS [Suspect]
     Active Substance: IBUPROFEN\PSEUDOEPHEDRINE HYDROCHLORIDE
     Indication: MALAISE
     Dosage: UNK
     Dates: end: 2015

REACTIONS (6)
  - Drug ineffective [Unknown]
  - Wrong technique in product usage process [Unknown]
  - Fall [Unknown]
  - Product packaging issue [Unknown]
  - Head injury [Unknown]
  - Swelling face [Not Recovered/Not Resolved]

NARRATIVE: CASE EVENT DATE: 2015
